FAERS Safety Report 11751211 (Version 3)
Quarter: 2015Q4

REPORT INFORMATION
  Report Type: Spontaneous
  Country: US (occurrence: US)
  Receive Date: 20151118
  Receipt Date: 20151215
  Transmission Date: 20160304
  Serious: Yes (Hospitalization, Other)
  Sender: FDA-Public Use
  Company Number: US-PFIZER INC-2015394163

PATIENT
  Age: 50 Year
  Sex: Male

DRUGS (27)
  1. NORTRIPTYLINE /00006502/ [Suspect]
     Active Substance: NORTRIPTYLINE HYDROCHLORIDE
     Dosage: 25 MG, DAILY
     Route: 048
  2. ALBUTEROL SULFATE. [Suspect]
     Active Substance: ALBUTEROL SULFATE
     Dosage: 3 ML, UNK
  3. PANTOPRAZOLE [Suspect]
     Active Substance: PANTOPRAZOLE SODIUM
     Dosage: 40 MG, DAILY
     Route: 048
  4. ATORVASTATIN CALCIUM. [Suspect]
     Active Substance: ATORVASTATIN CALCIUM
     Dosage: 20 MG, DAILY
     Route: 048
  5. DOCUSATE SODIUM AND SENNA [Suspect]
     Active Substance: DOCUSATE SODIUM\SENNOSIDES
     Dosage: UNK UNK, 2X/DAY
     Route: 048
  6. FLONASE [Suspect]
     Active Substance: FLUTICASONE PROPIONATE
     Dosage: 50 UG, DAILY
     Route: 045
  7. METRONIDAZOLE. [Suspect]
     Active Substance: METRONIDAZOLE
     Dosage: 250 MG, 2X/DAY
     Route: 048
  8. HYDROMORPHONE [Suspect]
     Active Substance: HYDROMORPHONE
     Dosage: UNK
     Route: 037
  9. LORAZEPAM. [Suspect]
     Active Substance: LORAZEPAM
     Dosage: 1 MG, 2X/DAY
     Route: 048
  10. GUAIFENESIN. [Suspect]
     Active Substance: GUAIFENESIN
     Dosage: UNK UNK, DAILY
     Route: 048
  11. METHADONE [Suspect]
     Active Substance: METHADONE HYDROCHLORIDE
     Dosage: 10 MG, 3X/DAY
     Route: 048
  12. CYMBALTA [Suspect]
     Active Substance: DULOXETINE HYDROCHLORIDE
     Dosage: 60 MG, DAILY
     Route: 048
  13. NOVOLOG [Suspect]
     Active Substance: INSULIN ASPART
     Dosage: 100U/ML
     Route: 058
  14. PARACETAMOL [Suspect]
     Active Substance: ACETAMINOPHEN
     Dosage: 650 MG, 4X/DAY
     Route: 048
  15. CETIRIZINE [Suspect]
     Active Substance: CETIRIZINE HYDROCHLORIDE
     Dosage: 10 MG, DAILY
     Route: 048
  16. HEPARIN SODIUM. [Suspect]
     Active Substance: HEPARIN SODIUM
     Dosage: 10U/ML
     Route: 042
  17. FERROUS SULFATE [Suspect]
     Active Substance: FERROUS SULFATE\FERROUS SULFATE, DRIED
     Dosage: 325 MG, 2X/DAY
     Route: 048
  18. NYSTATIN. [Suspect]
     Active Substance: NYSTATIN
     Dosage: 1000 U/GM CREAM
     Route: 061
  19. MYCOSONE-B [Suspect]
     Active Substance: BETAMETHASONE VALERATE\CLOTRIMAZOLE
     Dosage: UNK
     Route: 065
  20. VITAMIN E [Suspect]
     Active Substance: .ALPHA.-TOCOPHEROL
     Dosage: UNK UNK, DAILY
     Route: 048
  21. DSS [Suspect]
     Active Substance: DEXTRAN SULFATE SODIUM SALT
     Dosage: 100 MG, 2X/DAY
     Route: 048
  22. LIDOCAINE HCL [Suspect]
     Active Substance: LIDOCAINE HYDROCHLORIDE
     Dosage: UNK
     Route: 065
  23. METFORMIN HCL [Suspect]
     Active Substance: METFORMIN HYDROCHLORIDE
     Dosage: 1000 MG, 2X/DAY
     Route: 048
  24. BACLOFEN INTRATHECAL SINTETICA [Suspect]
     Active Substance: BACLOFEN
     Indication: MUSCLE SPASTICITY
     Dosage: 499 UG, DAILY
     Route: 037
  25. HYDROMORPHONE [Suspect]
     Active Substance: HYDROMORPHONE
     Indication: MUSCLE SPASTICITY
     Dosage: 0.151 MG, DAILY
     Route: 037
  26. HYDROMORPHONE HCL [Suspect]
     Active Substance: HYDROMORPHONE HYDROCHLORIDE
     Dosage: UNK UNK, 2X/DAY
     Route: 065
  27. MAGNESIUM HYDROXIDE. [Suspect]
     Active Substance: MAGNESIUM HYDROXIDE
     Dosage: 30 ML
     Route: 048

REACTIONS (14)
  - Headache [Not Recovered/Not Resolved]
  - Arthralgia [Unknown]
  - Joint stiffness [Unknown]
  - Myalgia [Unknown]
  - Muscle spasms [Not Recovered/Not Resolved]
  - Urinary tract infection [Unknown]
  - Infection [Recovered/Resolved]
  - Muscle spasticity [Not Recovered/Not Resolved]
  - Therapeutic response decreased [Unknown]
  - Arthritis infective [Unknown]
  - Decubitus ulcer [Recovered/Resolved]
  - Osteomyelitis [Recovered/Resolved]
  - Joint effusion [Unknown]
  - Blood pressure increased [Not Recovered/Not Resolved]

NARRATIVE: CASE EVENT DATE: 20151007
